FAERS Safety Report 8614631-6 (Version None)
Quarter: 2012Q3

REPORT INFORMATION
  Report Type: 
  Country: None (occurrence: None)
  Receive Date: 20120823
  Receipt Date: 20120821
  Transmission Date: 20120928
  Serious: Yes (Other)
  Sender: FDA-Public Use
  Company Number: PHHY2012NL072375

PATIENT
  Sex: Female

DRUGS (3)
  1. ZOMETA [Suspect]
     Dosage: 4 MG/100 ML, 1X PER 182 DAYS, IN 20 MIN
     Route: 042
     Dates: start: 20120821
  2. ZOMETA [Suspect]
     Dosage: 4 MG/100 ML, 1X PER 182 DAYS, IN 20 MIN
     Route: 042
     Dates: start: 20120216
  3. ZOMETA [Suspect]
     Indication: BREAST CANCER METASTATIC
     Dosage: 4 MG/100 ML, 1X PER 182 DAYS, IN 20 MIN
     Route: 042
     Dates: start: 20100803

REACTIONS (2)
  - FALL [None]
  - WRIST FRACTURE [None]
